FAERS Safety Report 9676442 (Version 2)
Quarter: 2013Q4

REPORT INFORMATION
  Report Type: Spontaneous
  Country: US (occurrence: US)
  Receive Date: 20131107
  Receipt Date: 20131227
  Transmission Date: 20140711
  Serious: Yes (Disabling, Other)
  Sender: FDA-Public Use
  Company Number: CHPA2013US016463

PATIENT
  Age: 73 Year
  Sex: Female

DRUGS (4)
  1. EXCEDRIN EXTRA STRENGTH [Suspect]
     Indication: HEADACHE
     Dosage: 2 DF, Q6H
     Route: 048
  2. EXCEDRIN PM [Suspect]
     Indication: FEELING OF RELAXATION
     Dosage: 2 DF, PRN
     Route: 048
  3. EXCEDRIN PM [Suspect]
     Indication: INSOMNIA
  4. EXCEDRIN PM [Suspect]
     Indication: OFF LABEL USE

REACTIONS (13)
  - Brain injury [Recovered/Resolved]
  - VIIth nerve paralysis [Recovered/Resolved]
  - Hemiplegia [Recovered/Resolved]
  - Wheelchair user [Recovered/Resolved]
  - Fall [Recovered/Resolved]
  - Headache [Recovered/Resolved]
  - Insomnia [Not Recovered/Not Resolved]
  - Disease recurrence [Not Recovered/Not Resolved]
  - Feeling abnormal [Unknown]
  - Sinus headache [Not Recovered/Not Resolved]
  - Terminal insomnia [Not Recovered/Not Resolved]
  - Arthralgia [Not Recovered/Not Resolved]
  - Therapeutic response unexpected [Unknown]
